FAERS Safety Report 10458388 (Version 1)
Quarter: 2014Q3

REPORT INFORMATION
  Report Type: Spontaneous
  Country: IT (occurrence: IT)
  Receive Date: 20140917
  Receipt Date: 20140917
  Transmission Date: 20150326
  Serious: Yes (Other)
  Sender: FDA-Public Use
  Company Number: IT-JNJFOC-20140910266

PATIENT
  Age: 19 Year
  Sex: Male

DRUGS (3)
  1. PARACETAMOL (GENERIC) [Suspect]
     Active Substance: ACETAMINOPHEN
     Route: 048
  2. IBUPROFEN (UNSPECIFIED) [Suspect]
     Active Substance: IBUPROFEN
     Indication: HEADACHE
     Route: 048
     Dates: start: 20140722, end: 20140722
  3. PARACETAMOL (GENERIC) [Suspect]
     Active Substance: ACETAMINOPHEN
     Indication: HEADACHE
     Route: 048
     Dates: start: 20140722, end: 20140722

REACTIONS (4)
  - Lip oedema [Recovering/Resolving]
  - Pruritus [Recovering/Resolving]
  - Rash [Recovering/Resolving]
  - Hypersensitivity [Recovering/Resolving]

NARRATIVE: CASE EVENT DATE: 20140722
